FAERS Safety Report 6176210-2 (Version None)
Quarter: 2009Q2

REPORT INFORMATION
  Report Type: 
  Country: None (occurrence: None)
  Receive Date: 20090501
  Receipt Date: 20090424
  Transmission Date: 20091009
  Serious: Yes (Hospitalization)
  Sender: FDA-Public Use
  Company Number: A0770485A

PATIENT
  Age: 51 Year
  Sex: Female
  Weight: 113.6 kg

DRUGS (12)
  1. AVANDAMET [Suspect]
     Indication: DIABETES MELLITUS
     Route: 048
     Dates: start: 20040101, end: 20070601
  2. AVANDIA [Suspect]
     Route: 048
  3. TOPROL-XL [Concomitant]
  4. ZIAC [Concomitant]
  5. AMBIEN [Concomitant]
  6. ZOLOFT [Concomitant]
  7. ZYRTEC [Concomitant]
  8. HYZAAR [Concomitant]
  9. MOBIC [Concomitant]
  10. TRAMADOL HCL [Concomitant]
  11. LIPITOR [Concomitant]
  12. METFORMIN HCL [Concomitant]

REACTIONS (11)
  - ANXIETY [None]
  - CARDIAC DISORDER [None]
  - CARDIAC FAILURE CONGESTIVE [None]
  - DEPRESSION [None]
  - HEART RATE IRREGULAR [None]
  - MYOCARDIAL INFARCTION [None]
  - MYOCARDIAL ISCHAEMIA [None]
  - OEDEMA MOUTH [None]
  - OEDEMA PERIPHERAL [None]
  - PNEUMONIA [None]
  - TRANSIENT ISCHAEMIC ATTACK [None]
